FAERS Safety Report 4401984-8 (Version None)
Quarter: 2004Q3

REPORT INFORMATION
  Report Type: 
  Country: None (occurrence: None)
  Receive Date: 20040714
  Receipt Date: 20030618
  Transmission Date: 20050211
  Serious: Yes (Other)
  Sender: FDA-Public Use
  Company Number: USA030639815

PATIENT
  Age: 27 Year
  Sex: Male

DRUGS (5)
  1. STRATTERA [Suspect]
     Indication: ATTENTION DEFICIT/HYPERACTIVITY DISORDER
     Dosage: 80 MG/AT BEDTIME
  2. PROZAC [Suspect]
     Dosage: 80 MG/DAY
     Route: 048
  3. ZYPREXA [Suspect]
     Dosage: 10 MG/AT BEDTIME
     Route: 048
  4. ADDERALL 20 [Concomitant]
  5. NEXIUM [Concomitant]

REACTIONS (1)
  - CONVULSION [None]
